FAERS Safety Report 26007414 (Version 2)
Quarter: 2025Q4

REPORT INFORMATION
  Report Type: Spontaneous
  Country: US (occurrence: US)
  Receive Date: 20251106
  Receipt Date: 20251113
  Transmission Date: 20260118
  Serious: Yes (Other)
  Sender: PFIZER
  Company Number: US-KOANAAP-SML-US-2025-00500

PATIENT
  Age: 62 Year
  Sex: Female

DRUGS (2)
  1. DOCETAXEL [Suspect]
     Active Substance: DOCETAXEL
     Indication: Epithelioid sarcoma
     Dosage: 50 MG/M2, CYCLIC (FREQ:2 WK;Q2 WEEK SCHEDULE)
     Dates: start: 20230829, end: 20240227
  2. GEMCITABINE HYDROCHLORIDE [Suspect]
     Active Substance: GEMCITABINE HYDROCHLORIDE
     Indication: Epithelioid sarcoma
     Dosage: 1500 MG/M2, CYCLIC (FREQ:2 WK;Q2 WEEK SCHEDULE)
     Dates: start: 20230829, end: 20240227

REACTIONS (3)
  - Hyponatraemia [Unknown]
  - Pleural effusion [Unknown]
  - Performance status decreased [Unknown]

NARRATIVE: CASE EVENT DATE: 20240101
